FAERS Safety Report 6418947-3 (Version None)
Quarter: 2009Q4

REPORT INFORMATION
  Report Type: 
  Country: None (occurrence: None)
  Receive Date: 20091029
  Receipt Date: 20091020
  Transmission Date: 20100525
  Serious: Yes (Hospitalization, Other)
  Sender: FDA-Public Use
  Company Number: AU-ASTRAZENECA-2009SE21345

PATIENT
  Age: 0 Day

DRUGS (5)
  1. SEROQUEL [Suspect]
     Indication: PSYCHOTIC DISORDER
     Dosage: TOTAL DAILY DOSE 900-1000MG EVERY NIGHT
     Route: 064
  2. ELEVIT [Concomitant]
     Indication: PROPHYLAXIS OF NEURAL TUBE DEFECT
     Dosage: 1 TABLET DAILY
     Route: 064
     Dates: start: 20090101, end: 20090828
  3. HALOPERIDOL [Concomitant]
     Indication: PSYCHOTIC DISORDER
     Dosage: 7.5-12.5 MG DAILY
     Route: 064
     Dates: start: 20090101
  4. EFFEXOR [Concomitant]
     Indication: ANTIDEPRESSANT THERAPY
     Route: 064
     Dates: start: 20090101
  5. ZOLOFT [Concomitant]
     Indication: ANTIDEPRESSANT THERAPY
     Route: 064
     Dates: start: 20090101

REACTIONS (3)
  - DRUG WITHDRAWAL SYNDROME NEONATAL [None]
  - PREMATURE BABY [None]
  - RESPIRATORY DISTRESS [None]
